FAERS Safety Report 7101756-X (Version None)
Quarter: 2010Q4

REPORT INFORMATION
  Report Type: 
  Country: None (occurrence: None)
  Receive Date: 20101115
  Receipt Date: 20101105
  Transmission Date: 20110411
  Serious: Yes (Other)
  Sender: FDA-Public Use
  Company Number: US-SANOFI-AVENTIS-2010SA059605

PATIENT
  Age: 62 Year
  Sex: Female
  Weight: 85.9 kg

DRUGS (17)
  1. MULTAQ [Suspect]
     Indication: ATRIAL FIBRILLATION
     Route: 048
     Dates: start: 20100916
  2. SECTRAL [Concomitant]
     Indication: ATRIAL FIBRILLATION
     Dates: start: 20081101, end: 20100916
  3. SECTRAL [Concomitant]
     Indication: BLOOD PRESSURE
     Dates: start: 20081101, end: 20100916
  4. SECTRAL [Concomitant]
     Dates: start: 20100917, end: 20101001
  5. SECTRAL [Concomitant]
     Dates: start: 20100917, end: 20101001
  6. SECTRAL [Concomitant]
     Dosage: 0530, 0715
     Dates: start: 20101001
  7. SECTRAL [Concomitant]
     Dosage: 0530, 0715
     Dates: start: 20101001
  8. SYNTHROID [Concomitant]
     Dates: start: 20040401
  9. POTASSIUM CHLORIDE [Concomitant]
  10. ALDACTONE [Concomitant]
     Indication: BLOOD PRESSURE
  11. VAGIFEM [Concomitant]
  12. ASPIRIN [Concomitant]
     Dosage: 3 TIMES ON 28-OCT-2010
  13. OS-CAL + D [Concomitant]
  14. MULTI-VITAMINS [Concomitant]
  15. METAMUCIL-2 [Concomitant]
  16. FISH OIL [Concomitant]
  17. XANAX [Concomitant]
     Dosage: 0530, 0715

REACTIONS (4)
  - ATRIAL FIBRILLATION [None]
  - DYSPEPSIA [None]
  - IRRITABLE BOWEL SYNDROME [None]
  - RESTLESSNESS [None]
